FAERS Safety Report 9522523 (Version 1)
Quarter: 2013Q3

REPORT INFORMATION
  Report Type: Spontaneous
  Country: US (occurrence: US)
  Receive Date: 20130913
  Receipt Date: 20130913
  Transmission Date: 20140515
  Serious: Yes (Life-Threatening, Hospitalization)
  Sender: FDA-Public Use
  Company Number: US-ASTRAZENECA-2013SE68851

PATIENT
  Age: 49 Year
  Sex: Male
  Weight: 68 kg

DRUGS (10)
  1. PRILOSEC [Suspect]
     Dosage: 20 MG, 1-2 TIMES A DAY
     Route: 048
  2. PRILOSEC [Suspect]
     Route: 048
  3. XANAX [Suspect]
     Indication: POST-TRAUMATIC STRESS DISORDER
     Dosage: 0.5 - 5 MG, AS NEEDED
     Route: 065
  4. XANAX [Suspect]
     Indication: POST-TRAUMATIC STRESS DISORDER
     Route: 065
  5. NEURONTIN [Suspect]
     Route: 065
  6. LYRICA [Suspect]
     Indication: FIBROMYALGIA
     Route: 065
     Dates: start: 2004
  7. LYRICA [Suspect]
     Indication: FIBROMYALGIA
     Route: 065
  8. UNSPECIFIED [Suspect]
     Route: 065
  9. KLONOPIN [Concomitant]
     Indication: POST-TRAUMATIC STRESS DISORDER
  10. SYNTHROID [Concomitant]

REACTIONS (9)
  - Apparent death [Unknown]
  - Asthma [Unknown]
  - Adverse drug reaction [Unknown]
  - Asthma [Unknown]
  - Dizziness [Recovered/Resolved]
  - Ataxia [Unknown]
  - Musculoskeletal disorder [Unknown]
  - Arthropathy [Unknown]
  - Intentional drug misuse [Unknown]
